FAERS Safety Report 11779624 (Version 2)
Quarter: 2015Q4

REPORT INFORMATION
  Report Type: Spontaneous
  Country: US (occurrence: None)
  Receive Date: 20151125
  Receipt Date: 20151202
  Transmission Date: 20160304
  Serious: No
  Sender: FDA-Public Use
  Company Number: US-MDT-ADR-2015-02250

PATIENT
  Age: 52 Year
  Sex: Female

DRUGS (2)
  1. BACLOFEN INTRATHECAL [Suspect]
     Active Substance: BACLOFEN
     Indication: PAIN
     Dosage: 2.6 MCG/DAY
  2. MORPHINE INTRATHECAL 25 MG/ML [Suspect]
     Active Substance: MORPHINE
     Indication: PAIN
     Dosage: 8.2 MG/DAY

REACTIONS (1)
  - Underdose [None]
